FAERS Safety Report 5894894-0 (Version None)
Quarter: 2008Q3

REPORT INFORMATION
  Report Type: 
  Country: None (occurrence: None)
  Receive Date: 20080924
  Receipt Date: 20080912
  Transmission Date: 20090109
  Serious: Yes (Other)
  Sender: FDA-Public Use
  Company Number: PHHY2008JP21843

PATIENT
  Sex: Male

DRUGS (2)
  1. LAMISIL [Suspect]
     Dosage: UNK
     Route: 048
     Dates: end: 20080901
  2. ASPIRIN [Concomitant]
     Route: 048

REACTIONS (1)
  - CARDIAC PACEMAKER MALFUNCTION [None]
